FAERS Safety Report 4631070-3 (Version None)
Quarter: 2005Q2

REPORT INFORMATION
  Report Type: 
  Country: None (occurrence: None)
  Receive Date: 20050406
  Receipt Date: 20050406
  Transmission Date: 20051028
  Serious: Yes (Other)
  Sender: FDA-Public Use
  Company Number: None

PATIENT
  Age: 47 Year
  Sex: Female

DRUGS (2)
  1. FENTANYL [Suspect]
     Indication: BACK PAIN
     Dosage: 100 MCG Q 3 DAYS
  2. FENTANYL [Suspect]
     Indication: RADICULOPATHY
     Dosage: 100 MCG Q 3 DAYS

REACTIONS (3)
  - DIZZINESS [None]
  - STOMACH DISCOMFORT [None]
  - THERAPY NON-RESPONDER [None]
